FAERS Safety Report 17834995 (Version 3)
Quarter: 2023Q4

REPORT INFORMATION
  Report Type: Report from Study
  Country: US (occurrence: US)
  Receive Date: 20200528
  Receipt Date: 20231215
  Transmission Date: 20240110
  Serious: Yes (Hospitalization, Other)
  Sender: FDA-Public Use
  Company Number: US-SHIRE-US202017295

PATIENT
  Age: 34 Year
  Sex: Female
  Weight: 44 kg

DRUGS (5)
  1. TEDUGLUTIDE [Suspect]
     Active Substance: TEDUGLUTIDE
     Indication: Short-bowel syndrome
     Dosage: 2.30 MILLIGRAM, QD
     Route: 042
     Dates: start: 20180430, end: 20181101
  2. TEDUGLUTIDE [Suspect]
     Active Substance: TEDUGLUTIDE
     Indication: Short-bowel syndrome
     Dosage: 2.30 MILLIGRAM, QD
     Route: 042
     Dates: start: 20180430, end: 20181101
  3. TEDUGLUTIDE [Suspect]
     Active Substance: TEDUGLUTIDE
     Indication: Short-bowel syndrome
     Dosage: 2.30 MILLIGRAM, QD
     Route: 042
     Dates: start: 20180430, end: 20181101
  4. TEDUGLUTIDE [Suspect]
     Active Substance: TEDUGLUTIDE
     Indication: Short-bowel syndrome
     Dosage: 2.30 MILLIGRAM, QD
     Route: 042
     Dates: start: 20180430, end: 20181101
  5. GABAPENTIN [Concomitant]
     Active Substance: GABAPENTIN
     Indication: Product used for unknown indication
     Dosage: UNK
     Route: 065

REACTIONS (5)
  - Mental status changes [Recovered/Resolved]
  - Acute kidney injury [Not Recovered/Not Resolved]
  - Post procedural haematoma [Recovered/Resolved]
  - Anaemia [Not Recovered/Not Resolved]
  - Colorectal adenoma [Not Recovered/Not Resolved]

NARRATIVE: CASE EVENT DATE: 20191122
